FAERS Safety Report 18698315 (Version 10)
Quarter: 2025Q3

REPORT INFORMATION
  Report Type: Report from Study
  Country: US (occurrence: US)
  Receive Date: 20210104
  Receipt Date: 20250712
  Transmission Date: 20251020
  Serious: Yes (Hospitalization, Other)
  Sender: TAKEDA
  Company Number: US-TAKEDA-US202024754

PATIENT
  Sex: Female
  Weight: 67 kg

DRUGS (40)
  1. HUMAN IMMUNOGLOBULIN G [Suspect]
     Active Substance: HUMAN IMMUNOGLOBULIN G
     Indication: Immunodeficiency common variable
     Dosage: 7.5 GRAM, 1/WEEK
     Dates: start: 20160830
  2. HUMAN IMMUNOGLOBULIN G [Suspect]
     Active Substance: HUMAN IMMUNOGLOBULIN G
     Indication: Primary immunodeficiency syndrome
  3. TEGRETOL [Concomitant]
     Active Substance: CARBAMAZEPINE
  4. ACETAMINOPHEN [Concomitant]
     Active Substance: ACETAMINOPHEN
  5. DIPHENHYDRAMINE [Concomitant]
     Active Substance: DIPHENHYDRAMINE
  6. EPINEPHRINE [Concomitant]
     Active Substance: EPINEPHRINE
  7. Lmx [Concomitant]
  8. MAXALT [Concomitant]
     Active Substance: RIZATRIPTAN BENZOATE
  9. NASONEX [Concomitant]
     Active Substance: MOMETASONE FUROATE
  10. TRAMADOL [Concomitant]
     Active Substance: TRAMADOL
  11. FLUOCINONIDE [Concomitant]
     Active Substance: FLUOCINONIDE
  12. FLONASE [Concomitant]
     Active Substance: FLUTICASONE PROPIONATE
  13. NEXIUM [Concomitant]
     Active Substance: ESOMEPRAZOLE MAGNESIUM
  14. MODAFINIL [Concomitant]
     Active Substance: MODAFINIL
  15. SACCHAROMYCES CEREVISIAE [Concomitant]
     Active Substance: SACCHAROMYCES CEREVISIAE
  16. MAGNESIUM [Concomitant]
     Active Substance: MAGNESIUM
  17. MECLIZINE [Concomitant]
     Active Substance: MECLIZINE HYDROCHLORIDE
  18. BIO [Concomitant]
  19. BIOCIDIN [Concomitant]
  20. FC [Concomitant]
  21. Monolaurin [Concomitant]
  22. DULOXETINE [Concomitant]
     Active Substance: DULOXETINE
  23. DULOXETINE HYDROCHLORIDE [Concomitant]
     Active Substance: DULOXETINE HYDROCHLORIDE
  24. LIDO [Concomitant]
  25. AZITHROMYCIN [Concomitant]
     Active Substance: AZITHROMYCIN
  26. KLONOPIN [Concomitant]
     Active Substance: CLONAZEPAM
  27. ANTIVERT [Concomitant]
     Active Substance: MECLIZINE HYDROCHLORIDE
  28. ARMOUR THYROID [Concomitant]
     Active Substance: THYROID, PORCINE
  29. TRAZODONE [Concomitant]
     Active Substance: TRAZODONE HYDROCHLORIDE
  30. VITAMIN D3 [Concomitant]
     Active Substance: CHOLECALCIFEROL
  31. TRISTART DHA [Concomitant]
     Active Substance: .ALPHA.-TOCOPHEROL ACETATE, D-\ASCORBIC ACID\CHOLECALCIFEROL\CYANOCOBALAMIN\DOCONEXENT\FOLIC ACID\IC
  32. METAMUCIL [Concomitant]
     Active Substance: PLANTAGO SEED
  33. SELENIUM SULFIDE [Concomitant]
     Active Substance: SELENIUM SULFIDE
  34. VITAMIN B12 [Concomitant]
     Active Substance: CYANOCOBALAMIN
  35. ESTRIOL [Concomitant]
     Active Substance: ESTRIOL
  36. TOPAMAX [Concomitant]
     Active Substance: TOPIRAMATE
  37. GLUCOSAMINE [Concomitant]
     Active Substance: GLUCOSAMINE
  38. PROVIGIL [Concomitant]
     Active Substance: MODAFINIL
  39. LEVSIN [Concomitant]
     Active Substance: HYOSCYAMINE SULFATE
  40. CLOBETASOL PROPIONATE [Concomitant]
     Active Substance: CLOBETASOL PROPIONATE

REACTIONS (22)
  - Thrombosis [Unknown]
  - Gun shot wound [Unknown]
  - Bell^s palsy [Unknown]
  - Neck pain [Unknown]
  - Back pain [Unknown]
  - Urinary tract infection [Unknown]
  - Rash pruritic [Unknown]
  - Infusion site pruritus [Not Recovered/Not Resolved]
  - Abdominal pain upper [Unknown]
  - Vomiting [Unknown]
  - Tooth disorder [Unknown]
  - Auriculotemporal syndrome [Unknown]
  - Post procedural complication [Unknown]
  - Blood immunoglobulin A decreased [Unknown]
  - Blood immunoglobulin M decreased [Unknown]
  - COVID-19 [Unknown]
  - Multiple allergies [Unknown]
  - Seasonal allergy [Unknown]
  - Oral discomfort [Unknown]
  - Visual impairment [Unknown]
  - Fatigue [Unknown]
  - Pain [Unknown]
